FAERS Safety Report 5271093-7 (Version None)
Quarter: 2007Q1

REPORT INFORMATION
  Report Type: 
  Country: None (occurrence: None)
  Receive Date: 20070321
  Receipt Date: 20070316
  Transmission Date: 20070707
  Serious: Yes (Hospitalization)
  Sender: FDA-Public Use
  Company Number: JP-JPN-A200701100

PATIENT
  Age: 39 Year
  Sex: Male

DRUGS (2)
  1. RELENZA [Suspect]
     Indication: INFLUENZA
     Route: 055
     Dates: start: 20070309, end: 20070312
  2. CALONAL [Concomitant]
     Route: 048

REACTIONS (4)
  - EPILEPSY [None]
  - EYE ROLLING [None]
  - FEELING ABNORMAL [None]
  - MUSCLE RIGIDITY [None]
